FAERS Safety Report 5289263-0 (Version None)
Quarter: 2007Q2

REPORT INFORMATION
  Report Type: 
  Country: None (occurrence: None)
  Receive Date: 20070403
  Receipt Date: 20070403
  Transmission Date: 20071010
  Serious: Yes (Hospitalization)
  Sender: FDA-Public Use
  Company Number: None

PATIENT
  Age: 69 Year
  Sex: Male
  Weight: 78.4723 kg

DRUGS (3)
  1. GEMCITABINE [Suspect]
     Indication: PANCREATIC CARCINOMA
     Dosage: 1000MG/M2    D 1, 8, 15   IV DRIP
     Route: 041
     Dates: start: 20061115, end: 20070327
  2. NOVASOY [Suspect]
     Dosage: 3 150MG BID  QD X 28 DAYS  PO
     Route: 048
     Dates: start: 20061115, end: 20070327
  3. ERLOTINIB [Suspect]
     Dosage: 150 MG QD  QD  X 28 DAYS  PO
     Route: 048
     Dates: start: 20061115, end: 20070327

REACTIONS (5)
  - DEHYDRATION [None]
  - DIARRHOEA [None]
  - MALIGNANT NEOPLASM PROGRESSION [None]
  - PAIN [None]
  - PANCREATIC CARCINOMA [None]
